FAERS Safety Report 21167786 (Version 2)
Quarter: 2022Q3

REPORT INFORMATION
  Report Type: Spontaneous
  Country: US (occurrence: US)
  Receive Date: 20220803
  Receipt Date: 20220923
  Transmission Date: 20221027
  Serious: Yes (Other)
  Sender: FDA-Public Use
  Company Number: US-BRISTOL-MYERS SQUIBB COMPANY-2022-080483

PATIENT
  Age: 68 Year
  Sex: Female

DRUGS (18)
  1. POMALYST [Suspect]
     Active Substance: POMALIDOMIDE
     Indication: Plasma cell myeloma
     Dosage: DAILY
     Route: 048
     Dates: start: 20211203
  2. PREGABALIN ZN [Concomitant]
     Indication: Product used for unknown indication
     Route: 065
  3. ASPIRIN TEVA [Concomitant]
     Indication: Product used for unknown indication
     Route: 065
  4. FOLCRES [ESCITALOPRAM] [Concomitant]
     Indication: Product used for unknown indication
     Route: 065
  5. EMPLICITI [Concomitant]
     Active Substance: ELOTUZUMAB
     Indication: Product used for unknown indication
     Route: 065
  6. ZOMETA [Concomitant]
     Active Substance: ZOLEDRONIC ACID
     Indication: Product used for unknown indication
     Dosage: 4MG/5ML INJ
     Route: 065
  7. ACYCLOVIR DENK [Concomitant]
     Indication: Product used for unknown indication
     Dosage: 400MG TABLETS
     Route: 065
  8. LOTRIMIN [Concomitant]
     Active Substance: CLOTRIMAZOLE
     Indication: Product used for unknown indication
     Dosage: 10MG
     Route: 065
  9. DEXAVET [DEXAMETHASONE] [Concomitant]
     Indication: Product used for unknown indication
     Dosage: 4MG TABLETS
     Route: 065
  10. C+G FOLIC ACID [Concomitant]
     Indication: Product used for unknown indication
     Dosage: 1MG TABLET
     Route: 065
  11. TOUJEO [Concomitant]
     Active Substance: INSULIN GLARGINE
     Indication: Product used for unknown indication
     Route: 065
  12. LIPAZ [LORAZEPAM] [Concomitant]
     Indication: Product used for unknown indication
     Dosage: 1MG TABLETS
     Route: 065
  13. PMS-NORTRIPTYLINE [Concomitant]
     Indication: Product used for unknown indication
     Dosage: 50MG CAPSULES
     Route: 065
  14. PANTOPRAZOLE PS [Concomitant]
     Indication: Product used for unknown indication
     Dosage: 40MG TABLETS
     Route: 065
  15. POTASSIUM K 20 [Concomitant]
     Indication: Product used for unknown indication
     Dosage: 1080MG (10MEQ)TABS
     Route: 065
  16. TAT [TRIAMTERENE] [Concomitant]
     Indication: Product used for unknown indication
     Dosage: 75MG  / HCTZ 50 MG
     Route: 065
  17. NEWITA VITAMIN B12 [Concomitant]
     Indication: Product used for unknown indication
     Dosage: 2000MCG TABLETS
     Route: 065
  18. VITAMIN D2 [Concomitant]
     Active Substance: ERGOCALCIFEROL
     Indication: Product used for unknown indication
     Dosage: (ERGO) CAP RX
     Route: 065

REACTIONS (2)
  - Sinusitis [Unknown]
  - Influenza [Unknown]

NARRATIVE: CASE EVENT DATE: 20220701
